FAERS Safety Report 9720344 (Version 1)
Quarter: 2013Q4

REPORT INFORMATION
  Report Type: Spontaneous
  Country: DE (occurrence: DE)
  Receive Date: 20131129
  Receipt Date: 20131129
  Transmission Date: 20140711
  Serious: Yes (Life-Threatening, Other)
  Sender: FDA-Public Use
  Company Number: DE-ROCHE-1310709

PATIENT
  Age: 73 Year
  Sex: Male
  Weight: 80 kg

DRUGS (2)
  1. ACTILYSE [Suspect]
     Indication: CEREBROVASCULAR ACCIDENT
     Route: 042
     Dates: start: 20131108
  2. LITALIR [Concomitant]
     Indication: CEREBROVASCULAR ACCIDENT

REACTIONS (4)
  - Platelet count abnormal [Not Recovered/Not Resolved]
  - Haemorrhage [Not Recovered/Not Resolved]
  - Cerebral haemorrhage [Recovered/Resolved]
  - Platelet count abnormal [Unknown]
